FAERS Safety Report 9288971 (Version 1)
Quarter: 2013Q2

REPORT INFORMATION
  Report Type: Spontaneous
  Country: CN (occurrence: CN)
  Receive Date: 20130514
  Receipt Date: 20130514
  Transmission Date: 20140414
  Serious: Yes (Other)
  Sender: FDA-Public Use
  Company Number: CN-GLAXOSMITHKLINE-B0891382A

PATIENT
  Sex: Female

DRUGS (1)
  1. HEPTODIN [Suspect]
     Indication: HEPATITIS B
     Dosage: 100MG PER DAY
     Route: 065
     Dates: start: 2011

REACTIONS (4)
  - Glomerulonephritis chronic [Not Recovered/Not Resolved]
  - Asthenia [Not Recovered/Not Resolved]
  - Protein urine [Not Recovered/Not Resolved]
  - Blood urine present [Not Recovered/Not Resolved]
